FAERS Safety Report 19239431 (Version 1)
Quarter: 2021Q2

REPORT INFORMATION
  Report Type: Spontaneous
  Country: FR (occurrence: FR)
  Receive Date: 20210510
  Receipt Date: 20210510
  Transmission Date: 20210717
  Serious: Yes (Death)
  Sender: FDA-Public Use
  Company Number: FR-PFIZER INC-2021460918

PATIENT
  Age: 77 Year
  Sex: Male
  Weight: 85 kg

DRUGS (10)
  1. ALIMTA [Suspect]
     Active Substance: PEMETREXED DISODIUM
     Indication: ADENOCARCINOMA
     Dosage: 1025 MG, SINGLE
     Route: 042
     Dates: start: 20210316, end: 20210316
  2. SIMVASTATINE [Concomitant]
     Active Substance: SIMVASTATIN
  3. PARACETAMOL [Concomitant]
     Active Substance: ACETAMINOPHEN
  4. CARBOPLATIN. [Suspect]
     Active Substance: CARBOPLATIN
     Indication: ADENOCARCINOMA
     Dosage: 500 MG, SINGLE
     Route: 042
     Dates: start: 20210316, end: 20210316
  5. KARDEGIC [Concomitant]
     Active Substance: ASPIRIN DL-LYSINE
  6. HYDROCHLOROTHIAZIDE. [Concomitant]
     Active Substance: HYDROCHLOROTHIAZIDE
  7. HUMALOG [Concomitant]
     Active Substance: INSULIN LISPRO
  8. LISINOPRIL. [Concomitant]
     Active Substance: LISINOPRIL
  9. PANTOPRAZOLE [Concomitant]
     Active Substance: PANTOPRAZOLE
  10. UMULINE [Concomitant]
     Active Substance: INSULIN HUMAN

REACTIONS (3)
  - Acute kidney injury [Fatal]
  - Bone marrow failure [Fatal]
  - Hyperglycaemia [Fatal]

NARRATIVE: CASE EVENT DATE: 20210323
